FAERS Safety Report 9858318 (Version 2)
Quarter: 2014Q1

REPORT INFORMATION
  Report Type: Spontaneous
  Country: IT (occurrence: IT)
  Receive Date: 20140131
  Receipt Date: 20140213
  Transmission Date: 20141002
  Serious: Yes (Death, Life-Threatening, Hospitalization, Other)
  Sender: FDA-Public Use
  Company Number: IT-ELI_LILLY_AND_COMPANY-IT201401009417

PATIENT
  Age: 74 Year
  Sex: Male
  Weight: 70 kg

DRUGS (4)
  1. GEMZAR [Suspect]
     Indication: LUNG NEOPLASM MALIGNANT
     Dosage: 1880 MG, CYCLICAL
     Route: 042
     Dates: start: 20131122, end: 20131217
  2. GEMZAR [Suspect]
     Dosage: 1880 MG, CYCLICAL
     Route: 042
     Dates: start: 20131129
  3. GEMZAR [Suspect]
     Dosage: 1880 MG, CYCLICAL
     Route: 042
     Dates: start: 20131217, end: 20131217
  4. CARBOPLATIN [Suspect]
     Indication: LUNG NEOPLASM MALIGNANT
     Dosage: 400 MG, CYCLICAL
     Route: 042
     Dates: start: 20131123, end: 20131218

REACTIONS (12)
  - Myocardial infarction [Fatal]
  - Cardiogenic shock [Fatal]
  - Left ventricular failure [Fatal]
  - Bradycardia [Not Recovered/Not Resolved]
  - Hypotension [Not Recovered/Not Resolved]
  - Hypopnoea [Not Recovered/Not Resolved]
  - Gastrointestinal haemorrhage [Unknown]
  - Pulmonary oedema [Unknown]
  - Thrombosis [Unknown]
  - Atrial fibrillation [Unknown]
  - Diarrhoea [Unknown]
  - Abdominal pain [Unknown]
